FAERS Safety Report 18583424 (Version 6)
Quarter: 2022Q4

REPORT INFORMATION
  Report Type: Report from Study
  Country: JP (occurrence: JP)
  Receive Date: 20201206
  Receipt Date: 20221013
  Transmission Date: 20230113
  Serious: Yes (Hospitalization, Other)
  Sender: FDA-Public Use
  Company Number: JP-BRISTOL-MYERS SQUIBB COMPANY-BMS-2020-101830

PATIENT
  Age: 68 Year
  Sex: Male
  Weight: 72.3 kg

DRUGS (20)
  1. YERVOY [Suspect]
     Active Substance: IPILIMUMAB
     Indication: Non-small cell lung cancer recurrent
     Route: 041
  2. YERVOY [Suspect]
     Active Substance: IPILIMUMAB
     Route: 041
     Dates: start: 20201215, end: 20210601
  3. YERVOY [Suspect]
     Active Substance: IPILIMUMAB
     Route: 041
     Dates: start: 20210713, end: 20220914
  4. YERVOY [Suspect]
     Active Substance: IPILIMUMAB
     Route: 041
     Dates: end: 20211005
  5. YERVOY [Suspect]
     Active Substance: IPILIMUMAB
     Route: 041
     Dates: end: 20210914
  6. OPDIVO [Suspect]
     Active Substance: NIVOLUMAB
     Indication: Non-small cell lung cancer recurrent
     Dosage: ONCE EVERY TWO WEEKS
     Route: 041
  7. OPDIVO [Suspect]
     Active Substance: NIVOLUMAB
     Route: 041
     Dates: start: 20201215, end: 20210601
  8. OPDIVO [Suspect]
     Active Substance: NIVOLUMAB
     Route: 041
     Dates: start: 20210713, end: 20210914
  9. OPDIVO [Suspect]
     Active Substance: NIVOLUMAB
     Route: 041
     Dates: start: 20210126, end: 20210216
  10. OPDIVO [Suspect]
     Active Substance: NIVOLUMAB
     Route: 041
     Dates: start: 20210309, end: 20210330
  11. OPDIVO [Suspect]
     Active Substance: NIVOLUMAB
     Route: 041
     Dates: start: 20210420, end: 20210511
  12. OPDIVO [Suspect]
     Active Substance: NIVOLUMAB
     Route: 041
     Dates: start: 20210601, end: 20211005
  13. CARBOPLATIN [Suspect]
     Active Substance: CARBOPLATIN
     Indication: Non-small cell lung cancer recurrent
     Dosage: 580MG?COMPLETE 2 DOSES
     Route: 041
     Dates: start: 20201215, end: 20210126
  14. PEMETREXED [Suspect]
     Active Substance: PEMETREXED
     Indication: Non-small cell lung cancer recurrent
     Dosage: COMPLETE 2 DOSES
     Route: 041
     Dates: start: 20201215, end: 20210126
  15. DAPAGLIFLOZIN [Suspect]
     Active Substance: DAPAGLIFLOZIN
     Indication: Type 2 diabetes mellitus
     Route: 048
  16. HYDROCORTISONE ECZEMA RESCUE [Concomitant]
     Indication: Product used for unknown indication
     Dosage: 15MG
     Route: 065
  17. AMARYL [Concomitant]
     Active Substance: GLIMEPIRIDE
     Indication: Type 2 diabetes mellitus
     Dosage: 3MG,EVERY DAY
     Route: 048
  18. ATORVASTATIN [Concomitant]
     Active Substance: ATORVASTATIN
     Indication: Dyslipidaemia
     Dosage: 5 MILLIGRAM, QD
     Route: 048
  19. METGLUCO [Concomitant]
     Active Substance: METFORMIN HYDROCHLORIDE
     Indication: Type 2 diabetes mellitus
     Dosage: 250 MILLIGRAM, BID
     Route: 065
  20. AMLODIPINE [Concomitant]
     Active Substance: AMLODIPINE BESYLATE
     Indication: Hypertension
     Route: 065

REACTIONS (12)
  - Colitis ulcerative [Unknown]
  - Interstitial lung disease [Recovered/Resolved]
  - Pneumonitis [Unknown]
  - Arthralgia [Unknown]
  - Hypophysitis [Unknown]
  - Hypothyroidism [Recovered/Resolved]
  - Secondary adrenocortical insufficiency [Recovering/Resolving]
  - Lymphocytic hypophysitis [Recovered/Resolved]
  - Rash maculo-papular [Recovering/Resolving]
  - Obesity [Recovering/Resolving]
  - Blood thyroid stimulating hormone increased [Unknown]
  - Thyroiditis [Unknown]

NARRATIVE: CASE EVENT DATE: 20210216
